FAERS Safety Report 13291268 (Version 1)
Quarter: 2017Q1

REPORT INFORMATION
  Report Type: Spontaneous
  Country: US (occurrence: US)
  Receive Date: 20170302
  Receipt Date: 20170302
  Transmission Date: 20170428
  Serious: Yes (Life-Threatening, Disabling, Other)
  Sender: FDA-Public Use
  Company Number: None

PATIENT
  Age: 25 Year
  Sex: Male
  Weight: 89.1 kg

DRUGS (6)
  1. TRAMADOL HCL 50MG TAB [Suspect]
     Active Substance: TRAMADOL HYDROCHLORIDE
     Indication: PAIN MANAGEMENT
     Dosage: ?          QUANTITY:1 TABLET(S);?
     Route: 048
     Dates: start: 20170201, end: 20170214
  2. PAXIL [Concomitant]
     Active Substance: PAROXETINE HYDROCHLORIDE
  3. MELOXICAM. [Concomitant]
     Active Substance: MELOXICAM
  4. HYDROCODONE [Concomitant]
     Active Substance: HYDROCODONE
  5. CYCLOBENZAPRINE [Concomitant]
     Active Substance: CYCLOBENZAPRINE
  6. ATENOLOL. [Concomitant]
     Active Substance: ATENOLOL

REACTIONS (12)
  - Thinking abnormal [None]
  - Agitation [None]
  - Anxiety [None]
  - Abnormal behaviour [None]
  - Insomnia [None]
  - Respiratory arrest [None]
  - Seizure [None]
  - Unresponsive to stimuli [None]
  - Pulse absent [None]
  - Eye movement disorder [None]
  - Hallucination [None]
  - Vomiting [None]

NARRATIVE: CASE EVENT DATE: 20170214
